FAERS Safety Report 13633903 (Version 2)
Quarter: 2017Q3

REPORT INFORMATION
  Report Type: Report from Study
  Country: IT (occurrence: IT)
  Receive Date: 20170609
  Receipt Date: 20170809
  Transmission Date: 20171127
  Serious: Yes (Hospitalization)
  Sender: FDA-Public Use
  Company Number: IT-ROCHE-1944804

PATIENT
  Age: 67 Year
  Sex: Male
  Weight: 105 kg

DRUGS (18)
  1. BISOPROLOL [Concomitant]
     Active Substance: BISOPROLOL
     Route: 048
     Dates: start: 201701
  2. PARACETAMOL [Concomitant]
     Active Substance: ACETAMINOPHEN
     Indication: MUSCULOSKELETAL PAIN
     Route: 048
     Dates: start: 20170321
  3. CONGESCOR [Concomitant]
     Active Substance: BISOPROLOL
     Route: 048
     Dates: start: 2016
  4. SANCUSO [Concomitant]
     Active Substance: GRANISETRON
     Indication: MUSCULOSKELETAL PAIN
     Route: 061
     Dates: start: 20170321
  5. TRIATEC (ITALY) [Concomitant]
     Active Substance: RAMIPRIL
     Route: 048
     Dates: start: 2016
  6. DEXAMETHASONE. [Concomitant]
     Active Substance: DEXAMETHASONE
     Route: 048
     Dates: start: 20170330, end: 20170402
  7. DEXAMETHASONE. [Concomitant]
     Active Substance: DEXAMETHASONE
     Route: 048
     Dates: start: 20170410, end: 20170419
  8. METOCLOPRAMIDE. [Concomitant]
     Active Substance: METOCLOPRAMIDE
     Indication: NAUSEA
     Route: 042
     Dates: start: 20170330, end: 20170330
  9. RANITIDINE. [Concomitant]
     Active Substance: RANITIDINE
     Route: 042
     Dates: start: 20170330, end: 20170330
  10. DEXAMETHASONE. [Concomitant]
     Active Substance: DEXAMETHASONE
     Indication: ASPARTATE AMINOTRANSFERASE INCREASED
     Route: 048
     Dates: start: 20170323, end: 20170330
  11. TARGIN [Concomitant]
     Active Substance: NALOXONE HYDROCHLORIDE\OXYCODONE HYDROCHLORIDE
     Indication: MUSCULOSKELETAL PAIN
     Route: 047
     Dates: start: 20170321, end: 20170330
  12. LARGACTIL [Concomitant]
     Active Substance: CHLORPROMAZINE
     Indication: HICCUPS
     Route: 048
     Dates: start: 20170330
  13. DEXAMETHASONE. [Concomitant]
     Active Substance: DEXAMETHASONE
     Route: 042
     Dates: start: 20170330, end: 20170330
  14. ATEZOLIZUMAB. [Suspect]
     Active Substance: ATEZOLIZUMAB
     Indication: NEOPLASM
     Dosage: DATE OF MOST RECENT DOSE PRIOR TO SAE: 07/MAR/2017
     Route: 042
     Dates: start: 20170307
  15. RAMIPRIL. [Concomitant]
     Active Substance: RAMIPRIL
     Route: 048
     Dates: start: 201701
  16. ORAMORPH [Concomitant]
     Active Substance: MORPHINE SULFATE
     Indication: MUSCULOSKELETAL PAIN
     Route: 048
     Dates: start: 20170321
  17. AUGMENTIN [Concomitant]
     Active Substance: AMOXICILLIN\CLAVULANATE POTASSIUM
     Indication: INFECTION PROPHYLAXIS
     Route: 048
     Dates: start: 20170405, end: 20170411
  18. DEXAMETHASONE. [Concomitant]
     Active Substance: DEXAMETHASONE
     Route: 048
     Dates: start: 20170403, end: 20170409

REACTIONS (1)
  - Hyperglycaemia [Recovered/Resolved]

NARRATIVE: CASE EVENT DATE: 20170405
